FAERS Safety Report 9026536 (Version 1)
Quarter: 2012Q4

REPORT INFORMATION
  Report Type: Spontaneous
  Country: US (occurrence: None)
  Receive Date: 20121214
  Receipt Date: 20121214
  Transmission Date: 20130627
  Serious: Yes (Other)
  Sender: FDA-Public Use
  Company Number: None

PATIENT
  Age: 52 None
  Sex: Female

DRUGS (2)
  1. TYSABRI [Suspect]
     Indication: MS
     Dosage: 300mg Qmonth SQ
     Route: 058
     Dates: start: 20110510
  2. TYSABRI [Suspect]
     Indication: MS
     Dates: start: 20121120

REACTIONS (1)
  - JC virus test positive [None]
